FAERS Safety Report 15878141 (Version 2)
Quarter: 2019Q4

REPORT INFORMATION
  Report Type: Spontaneous
  Country: GB (occurrence: GB)
  Receive Date: 20190128
  Receipt Date: 20191127
  Transmission Date: 20200122
  Serious: Yes (Hospitalization, Disabling, Other)
  Sender: FDA-Public Use
  Company Number: GB-AUROBINDO-AUR-APL-2019-002953

PATIENT
  Age: 56 Year
  Sex: Male
  Weight: 69 kg

DRUGS (4)
  1. EPILIM [Suspect]
     Active Substance: VALPROATE SODIUM
     Indication: PRODUCT USED FOR UNKNOWN INDICATION
     Dosage: UNK
     Route: 065
     Dates: start: 2004, end: 20140310
  2. FLECAINIDE [Suspect]
     Active Substance: FLECAINIDE
     Indication: ATRIAL FIBRILLATION
     Dosage: 200 MILLIGRAM, ONCE A DAY
     Route: 048
     Dates: start: 20130923
  3. PARACETAMOL [Concomitant]
     Active Substance: ACETAMINOPHEN
     Indication: NASOPHARYNGITIS
     Dosage: UNK
     Route: 065
  4. KEPPRA [Concomitant]
     Active Substance: LEVETIRACETAM
     Indication: PRODUCT USED FOR UNKNOWN INDICATION
     Dosage: UNK
     Route: 065
     Dates: end: 20131010

REACTIONS (3)
  - Malaise [Unknown]
  - Withdrawal syndrome [Unknown]
  - Partial seizures [Not Recovered/Not Resolved]

NARRATIVE: CASE EVENT DATE: 20140411
